FAERS Safety Report 15963850 (Version 2)
Quarter: 2019Q2

REPORT INFORMATION
  Report Type: Report from Study
  Country: US (occurrence: US)
  Receive Date: 20190214
  Receipt Date: 20190415
  Transmission Date: 20190711
  Serious: Yes (Hospitalization, Disabling)
  Sender: FDA-Public Use
  Company Number: US-ACTELION-A-NJ2018-182894

PATIENT
  Age: 67 Year
  Sex: Female

DRUGS (25)
  1. DILTIAZEM. [Concomitant]
     Active Substance: DILTIAZEM
     Dosage: 120 MG, QD
  2. NIZORAL [Concomitant]
     Active Substance: KETOCONAZOLE
  3. DULCOLAX NOS [Concomitant]
     Active Substance: BISACODYL OR DOCUSATE SODIUM
  4. NYSTATIN AND TRIAMCINOLONE [Concomitant]
     Active Substance: NYSTATIN\TRIAMCINOLONE ACETONIDE
  5. OXYCODONE [Concomitant]
     Active Substance: OXYCODONE
     Indication: PAIN
     Dosage: 10 ML, Q4HRS
     Route: 048
  6. PANTOPRAZOLE [Concomitant]
     Active Substance: PANTOPRAZOLE
  7. BISACODYL. [Concomitant]
     Active Substance: BISACODYL
     Dosage: 10 MG, QD
  8. COLACE [Concomitant]
     Active Substance: DOCUSATE SODIUM
  9. ONDANSETRON [Concomitant]
     Active Substance: ONDANSETRON
     Indication: NAUSEA
     Dosage: 4 MG, TID
     Route: 048
  10. ASPIRIN. [Concomitant]
     Active Substance: ASPIRIN
     Dosage: 81 MG, QD
     Route: 048
  11. LIDEX [Concomitant]
     Active Substance: FLUOCINONIDE
  12. BUSPIRONE [Concomitant]
     Active Substance: BUSPIRONE HYDROCHLORIDE
     Dosage: 10 MG, BID
     Route: 048
  13. DOXYCYCLINE. [Concomitant]
     Active Substance: DOXYCYCLINE
  14. SILDENAFIL. [Concomitant]
     Active Substance: SILDENAFIL
     Dosage: 20 MG, TID
     Route: 048
  15. BETAMETHASONE. [Concomitant]
     Active Substance: BETAMETHASONE
  16. DOCUSATE SODIUM. [Concomitant]
     Active Substance: DOCUSATE SODIUM
  17. VITAMIN K [Concomitant]
     Active Substance: PHYTONADIONE
  18. TRACLEER [Suspect]
     Active Substance: BOSENTAN
     Indication: PULMONARY ARTERIAL HYPERTENSION
     Dosage: 62.5 MG, BID
     Route: 048
     Dates: start: 20171026, end: 20190215
  19. SENNA [Concomitant]
     Active Substance: SENNA LEAF\SENNOSIDES\SENNOSIDES A AND B
     Indication: CONSTIPATION
     Dosage: 5 ML, BID
     Route: 048
  20. METOCLOPRAMIDE. [Concomitant]
     Active Substance: METOCLOPRAMIDE
  21. HYDROCHLOROTHIAZIDE. [Concomitant]
     Active Substance: HYDROCHLOROTHIAZIDE
     Dosage: 12.5 MG, QD
  22. KETOCONAZOLE. [Concomitant]
     Active Substance: KETOCONAZOLE
  23. FLUOCINONIDE. [Concomitant]
     Active Substance: FLUOCINONIDE
  24. MVI [Concomitant]
     Active Substance: VITAMINS
  25. MYCOLOG-II [Concomitant]
     Active Substance: NYSTATIN\TRIAMCINOLONE ACETONIDE

REACTIONS (6)
  - Small intestinal obstruction [Unknown]
  - Nerve compression [Unknown]
  - Condition aggravated [Unknown]
  - Peripheral swelling [Recovered/Resolved]
  - Hernia [Unknown]
  - Back pain [Unknown]

NARRATIVE: CASE EVENT DATE: 20181101
